FAERS Safety Report 7651511-7 (Version None)
Quarter: 2011Q3

REPORT INFORMATION
  Report Type: 
  Country: None (occurrence: None)
  Receive Date: 20110802
  Receipt Date: 20110725
  Transmission Date: 20111222
  Serious: Yes (Hospitalization, Other)
  Sender: FDA-Public Use
  Company Number: PHEH2009US02712

PATIENT
  Sex: Male

DRUGS (53)
  1. LIPITOR [Concomitant]
  2. ACYCLOVIR [Concomitant]
  3. VITAMIN E [Concomitant]
     Dosage: UNK
  4. ALLEGRA [Concomitant]
     Dosage: UNK
  5. ADVAIR DISKUS 100/50 [Concomitant]
  6. AMLODIPINE [Concomitant]
     Dosage: 10 MG, DAILY
  7. FOLTX [Concomitant]
  8. TENORMIN [Concomitant]
  9. REVLIMID [Concomitant]
     Dosage: UNK
     Dates: end: 20100429
  10. MOTRIN [Concomitant]
  11. GABAPENTIN [Concomitant]
     Dosage: 600 MG, TID
  12. VALSARTAN [Concomitant]
     Dosage: 80 MG, DAILY
  13. FLONASE [Concomitant]
  14. SOTALOL HCL [Concomitant]
  15. ACTOS [Concomitant]
  16. HYDROCHLOROTHIAZIDE [Concomitant]
  17. NASONEX [Concomitant]
     Dosage: UNK
  18. ATENOLOL [Concomitant]
  19. REQUIP [Concomitant]
  20. FOLIC ACID [Concomitant]
  21. HYDROCODONE [Concomitant]
  22. DULCOLAX [Concomitant]
  23. PLAVIX [Concomitant]
     Dosage: 75 MG, QD
  24. PROTONIX [Concomitant]
     Dosage: 40 MG, QD
  25. ALBUTEROL SULFATE AUTOHALER [Concomitant]
  26. CARAZOLOL [Concomitant]
     Dosage: 3.125 MG, BID
  27. DIOVAN [Concomitant]
     Dosage: 180 MG, UNK
  28. FOLATE SODIUM [Concomitant]
  29. LYRICA [Concomitant]
  30. FLUCONAZOLE [Concomitant]
  31. DEXAMETHASONE [Concomitant]
     Dosage: UNK
     Dates: end: 20100429
  32. POTASSIUM [Concomitant]
     Dosage: 30 MEQ, QD
  33. METFORMIN HCL [Concomitant]
     Dosage: 500 MG, DAILY
  34. PROCRIT                            /00909301/ [Concomitant]
  35. ALKERAN [Concomitant]
  36. PREDNISOLONE [Concomitant]
  37. NORVASC [Concomitant]
  38. LASIX [Concomitant]
  39. ASPIRIN [Concomitant]
  40. PROCRIT [Concomitant]
     Dosage: UNK
     Dates: start: 20030421
  41. PREDNISONE [Concomitant]
     Dosage: UNK
     Dates: start: 20030421
  42. AMITRIPTYLINE HCL [Concomitant]
     Dosage: UNK
  43. MIRALAX [Concomitant]
     Dosage: UNK
  44. CYTOXAN [Concomitant]
     Dosage: 100 MG,DAILY
  45. ZOMETA [Suspect]
     Dosage: 4 MG, MONTHLY
     Dates: start: 20030421
  46. GLUCOTROL [Concomitant]
  47. NEURONTIN [Concomitant]
     Dosage: 600 MG, TID
  48. MEXILETINE HYDROCHLORIDE [Concomitant]
     Dosage: 200 MG, TID
  49. VASOTEC [Concomitant]
  50. THALIDOMIDE [Concomitant]
  51. LISINOPRIL [Concomitant]
     Dosage: 2.5 MG, QD
  52. SPIRIVA [Concomitant]
  53. CYCLOPHOSPHAMIDE [Concomitant]
     Dosage: 100 MG, QD

REACTIONS (41)
  - OSTEOMYELITIS [None]
  - TOOTHACHE [None]
  - INTERVERTEBRAL DISC DEGENERATION [None]
  - RETINITIS [None]
  - LUNG NEOPLASM [None]
  - RESTLESS LEGS SYNDROME [None]
  - MUSCLE SPASMS [None]
  - DEFORMITY [None]
  - COUGH [None]
  - DIVERTICULUM [None]
  - VISUAL ACUITY REDUCED [None]
  - OEDEMA PERIPHERAL [None]
  - MYOCARDIAL ISCHAEMIA [None]
  - NEUTROPENIA [None]
  - OROPHARYNGEAL PAIN [None]
  - NEPHROLITHIASIS [None]
  - DIABETES MELLITUS [None]
  - NEUROPATHY PERIPHERAL [None]
  - PARAESTHESIA [None]
  - INFECTION [None]
  - ERYTHEMA [None]
  - FACET JOINT SYNDROME [None]
  - CATARACT [None]
  - OSTEONECROSIS OF JAW [None]
  - FIBROSIS [None]
  - MACULAR HOLE [None]
  - INTERSTITIAL LUNG DISEASE [None]
  - EXOSTOSIS [None]
  - HYPOAESTHESIA [None]
  - PAIN [None]
  - SWELLING FACE [None]
  - EMPHYSEMA [None]
  - DYSPNOEA [None]
  - CHEST DISCOMFORT [None]
  - INSOMNIA [None]
  - CARDIAC FAILURE CONGESTIVE [None]
  - DENTAL CARIES [None]
  - PANCYTOPENIA [None]
  - ATELECTASIS [None]
  - IRITIS [None]
  - ANAEMIA [None]
